FAERS Safety Report 13870747 (Version 2)
Quarter: 2017Q4

REPORT INFORMATION
  Report Type: Spontaneous
  Country: US (occurrence: US)
  Receive Date: 20170816
  Receipt Date: 20171026
  Transmission Date: 20180320
  Serious: Yes (Other)
  Sender: FDA-Public Use
  Company Number: US-AMGEN-USASP2017121763

PATIENT
  Age: 76 Year
  Sex: Female

DRUGS (1)
  1. REPATHA [Suspect]
     Active Substance: EVOLOCUMAB
     Indication: BLOOD CHOLESTEROL INCREASED
     Dosage: 140 MG, Q2WK
     Route: 065

REACTIONS (12)
  - Musculoskeletal stiffness [Unknown]
  - Oedema [Unknown]
  - Pain in extremity [Unknown]
  - Gait inability [Unknown]
  - Dry throat [Unknown]
  - Pain [Unknown]
  - Muscle spasms [Unknown]
  - Pharyngeal oedema [Unknown]
  - Paraesthesia [Unknown]
  - Fatigue [Unknown]
  - Joint swelling [Unknown]
  - Arthralgia [Unknown]
